FAERS Safety Report 18852768 (Version 2)
Quarter: 2021Q4

REPORT INFORMATION
  Report Type: Other
  Country: DE (occurrence: DE)
  Receive Date: 20210205
  Receipt Date: 20211009
  Transmission Date: 20220303
  Serious: Yes (Hospitalization)
  Sender: FDA-Public Use
  Company Number: DE-ROCHE-2758818

PATIENT
  Age: 32 Year
  Sex: Female
  Weight: 79 kg

DRUGS (11)
  1. OCRELIZUMAB [Suspect]
     Active Substance: OCRELIZUMAB
     Indication: Multiple sclerosis
     Dosage: DATE OF SECOND ADMINISTRATION 20-DEC-2019
     Route: 042
     Dates: start: 20191206
  2. OCRELIZUMAB [Suspect]
     Active Substance: OCRELIZUMAB
     Route: 042
     Dates: start: 20201112
  3. LEVOTHYROXINE SODIUM [Concomitant]
     Active Substance: LEVOTHYROXINE SODIUM
     Dates: start: 201806
  4. CORTISONE ACETATE [Concomitant]
     Active Substance: CORTISONE ACETATE
     Dates: start: 20191206, end: 20191206
  5. CORTISONE ACETATE [Concomitant]
     Active Substance: CORTISONE ACETATE
     Dates: start: 20191220, end: 20191220
  6. CORTISONE ACETATE [Concomitant]
     Active Substance: CORTISONE ACETATE
     Dates: start: 20200617, end: 20200619
  7. PANTOPRAZOLE [Concomitant]
     Active Substance: PANTOPRAZOLE
     Dates: start: 20191206, end: 20191206
  8. PANTOPRAZOLE [Concomitant]
     Active Substance: PANTOPRAZOLE
     Dates: start: 20191220, end: 20191220
  9. ACETAMINOPHEN [Concomitant]
     Active Substance: ACETAMINOPHEN
     Dates: start: 20191206, end: 20191206
  10. ACETAMINOPHEN [Concomitant]
     Active Substance: ACETAMINOPHEN
     Dates: start: 20191220, end: 20191220
  11. FERROUS GLUCONATE [Concomitant]
     Active Substance: FERROUS GLUCONATE
     Dates: start: 20200617

REACTIONS (1)
  - Anal abscess [Recovered/Resolved]

NARRATIVE: CASE EVENT DATE: 20210119
